FAERS Safety Report 12690746 (Version 3)
Quarter: 2017Q1

REPORT INFORMATION
  Report Type: Report from Study
  Country: US (occurrence: US)
  Receive Date: 20160826
  Receipt Date: 20170313
  Transmission Date: 20170428
  Serious: Yes (Death, Hospitalization)
  Sender: FDA-Public Use
  Company Number: US-BAYER-2016-137026

PATIENT
  Age: 56 Year
  Sex: Female

DRUGS (3)
  1. STIVARGA [Suspect]
     Active Substance: REGORAFENIB
     Indication: COLON CANCER
     Dosage: 120 MG, QD
     Route: 048
     Dates: start: 20160711, end: 20160804
  2. STIVARGA [Suspect]
     Active Substance: REGORAFENIB
     Indication: COLON CANCER
     Dosage: 120 MG DAILY DOSE
     Route: 048
     Dates: start: 20160907, end: 201702
  3. STIVARGA [Suspect]
     Active Substance: REGORAFENIB
     Indication: COLON CANCER
     Dosage: 160 MG, QD
     Route: 048
     Dates: start: 20160628, end: 20160710

REACTIONS (13)
  - Dysphagia [Not Recovered/Not Resolved]
  - Decreased appetite [Not Recovered/Not Resolved]
  - Hospitalisation [None]
  - Asthenia [Not Recovered/Not Resolved]
  - Hypertension [Not Recovered/Not Resolved]
  - Death [Fatal]
  - Hypotension [None]
  - Kidney infection [Not Recovered/Not Resolved]
  - Adverse drug reaction [None]
  - Confusional state [Not Recovered/Not Resolved]
  - Underdose [None]
  - Therapy change [None]
  - Pyrexia [Recovered/Resolved]

NARRATIVE: CASE EVENT DATE: 201607
